FAERS Safety Report 8915608 (Version 1)
Quarter: 2012Q4

REPORT INFORMATION
  Report Type: 
  Country: US (occurrence: US)
  Receive Date: 20121119
  Receipt Date: 20121119
  Transmission Date: 20130627
  Serious: No
  Sender: FDA-Public Use
  Company Number: US-FOUGERA-2012FO001244

PATIENT
  Age: 63 Year
  Sex: Female
  Weight: 56.7 kg

DRUGS (9)
  1. CLOBETASOL PROPIONATE [Suspect]
     Indication: STOMATITIS
     Route: 061
     Dates: start: 20120709, end: 20120714
  2. PREMARIN [Concomitant]
     Indication: HYSTERECTOMY
     Route: 048
  3. PREMARIN [Concomitant]
     Indication: HORMONE REPLACEMENT THERAPY
     Route: 048
  4. INDOCIN /00003801/ [Concomitant]
     Indication: ARTHRITIS
     Route: 048
  5. NORCO [Concomitant]
     Indication: PAIN
     Route: 048
  6. CALCIUM/VITAMIN D /01204201/ [Concomitant]
     Indication: ARTHRITIS
  7. BENTYL [Concomitant]
     Indication: COLITIS
     Route: 048
  8. PLAQUENIL /00072602/ [Concomitant]
     Indication: ARTHRITIS
     Route: 048
  9. TOPROL [Concomitant]
     Indication: HYPERTENSION
     Route: 048

REACTIONS (6)
  - Rash [Recovering/Resolving]
  - Urticaria [Unknown]
  - Off label use [Recovered/Resolved]
  - Skin burning sensation [Unknown]
  - Erythema [Unknown]
  - Pruritus [Recovered/Resolved]
